FAERS Safety Report 21621164 (Version 1)
Quarter: 2022Q4

REPORT INFORMATION
  Report Type: Report from Study
  Country: FR (occurrence: FR)
  Receive Date: 20221121
  Receipt Date: 20221121
  Transmission Date: 20230112
  Serious: Yes (Hospitalization)
  Sender: FDA-Public Use
  Company Number: FR-Merck KGaA-9074054

PATIENT
  Age: 56 Year
  Sex: Male
  Weight: 92 kg

DRUGS (3)
  1. CETUXIMAB [Suspect]
     Active Substance: CETUXIMAB
     Indication: Squamous cell carcinoma of head and neck
     Dosage: 400 MG/M2, WEEKLY (1/W)
     Route: 042
     Dates: start: 20180108, end: 20180108
  2. CETUXIMAB [Suspect]
     Active Substance: CETUXIMAB
     Dosage: 250 MG/M2, WEEKLY (1/W)
     Dates: start: 20190115
  3. AVELUMAB [Concomitant]
     Active Substance: AVELUMAB
     Indication: Squamous cell carcinoma of head and neck
     Dosage: 920 MG, CYCLICAL (EVERY 2 WEEKS)
     Route: 042
     Dates: start: 20190108

REACTIONS (3)
  - Sepsis [Recovered/Resolved]
  - Thrombocytopenia [Recovered/Resolved]
  - Pulmonary embolism [Recovered/Resolved]

NARRATIVE: CASE EVENT DATE: 20190220
